FAERS Safety Report 21663481 (Version 1)
Quarter: 2022Q4

REPORT INFORMATION
  Report Type: Spontaneous
  Country: US (occurrence: None)
  Receive Date: 20221130
  Receipt Date: 20221130
  Transmission Date: 20230113
  Serious: No
  Sender: FDA-Public Use
  Company Number: 2022A380053

PATIENT
  Sex: Male
  Weight: 42.2 kg

DRUGS (1)
  1. NEXIUM [Suspect]
     Active Substance: ESOMEPRAZOLE MAGNESIUM
     Indication: Gastrooesophageal reflux disease
     Dosage: 20 MG IN THE MORNING AND 40 MG AT NIGHT
     Route: 050

REACTIONS (4)
  - Ulcer haemorrhage [Unknown]
  - Malabsorption [Unknown]
  - Product prescribing issue [Unknown]
  - Product use issue [Unknown]
